FAERS Safety Report 6950415 (Version 3)
Quarter: 2018Q4

REPORT INFORMATION
  Report Type: Spontaneous
  Country: NL (occurrence: NL)
  Receive Date: 20090312
  Receipt Date: 20181221
  Transmission Date: 20190205
  Serious: Yes (Death, Hospitalization)
  Sender: FDA-Public Use
  Company Number: GXKR2009NL02672

PATIENT
  Age: 71 Year
  Sex: Male

DRUGS (1)
  1. PREDNISOLONE. [Suspect]
     Active Substance: PREDNISOLONE
     Indication: IMMUNE THROMBOCYTOPENIC PURPURA
     Dosage: 90 MG, QD
     Route: 048

REACTIONS (12)
  - Renal infarct [Fatal]
  - Pyrexia [Fatal]
  - Thrombocytopenia [Recovered/Resolved]
  - Haematuria [Recovered/Resolved]
  - Fungal infection [Fatal]
  - Respiratory failure [Fatal]
  - Dyspnoea [Recovered/Resolved]
  - Mucormycosis [Fatal]
  - Pulmonary mass [Fatal]
  - Dyspnoea exertional [Fatal]
  - Hyperglycaemia [Recovered/Resolved]
  - Abdominal pain [Fatal]
